FAERS Safety Report 6905549-5 (Version None)
Quarter: 2010Q3

REPORT INFORMATION
  Report Type: 
  Country: None (occurrence: None)
  Receive Date: 20100804
  Receipt Date: 20100726
  Transmission Date: 20110219
  Serious: Yes (Other)
  Sender: FDA-Public Use
  Company Number: AU-PFIZER INC-2010094101

PATIENT
  Age: 47 Year
  Sex: Male

DRUGS (4)
  1. LIPITOR [Suspect]
     Dosage: UNK
  2. CADUET [Suspect]
     Indication: HYPERTENSION
     Dosage: [AMLODIPINE BESILATE 5 MG]/[ATORVASTATIN CALCIUM 20 MG]
     Dates: start: 20100405, end: 20100706
  3. CADUET [Suspect]
     Indication: DYSLIPIDAEMIA
  4. PERINDOPRIL ERBUMINE [Suspect]
     Dosage: UNK

REACTIONS (2)
  - BLOOD PRESSURE INADEQUATELY CONTROLLED [None]
  - CAPILLARITIS [None]
